FAERS Safety Report 10087882 (Version 1)
Quarter: 2014Q2

REPORT INFORMATION
  Report Type: Spontaneous
  Country: US (occurrence: US)
  Receive Date: 20140418
  Receipt Date: 20140418
  Transmission Date: 20141212
  Serious: No
  Sender: FDA-Public Use
  Company Number: US-PURDUE-USA-2014-0111415

PATIENT
  Sex: Male

DRUGS (3)
  1. OXYCONTIN (NDA 22-272) [Suspect]
     Indication: SPINAL CORD INJURY
     Route: 048
  2. DARVON                             /00018802/ [Suspect]
     Indication: SPINAL CORD INJURY
     Route: 065
  3. PERCODAN                           /00090001/ [Suspect]
     Indication: SPINAL CORD INJURY
     Route: 065

REACTIONS (4)
  - Abnormal behaviour [Unknown]
  - Hypersomnia [Unknown]
  - Drug effect decreased [Unknown]
  - Mood altered [Unknown]
